FAERS Safety Report 8034610-X (Version None)
Quarter: 2012Q1

REPORT INFORMATION
  Report Type: 
  Country: None (occurrence: None)
  Receive Date: 20120110
  Receipt Date: 20120103
  Transmission Date: 20120608
  Serious: Yes (Death, Life-Threatening, Other)
  Sender: FDA-Public Use
  Company Number: US-RB-036060-12

PATIENT
  Age: 21 Year
  Sex: Female

DRUGS (1)
  1. BUPRENORPHINE [Suspect]
     Indication: PRODUCT USED FOR UNKNOWN INDICATION
     Dosage: UNKNOWN
     Route: 051
     Dates: end: 20111108

REACTIONS (6)
  - COMA [None]
  - MYDRIASIS [None]
  - CARDIAC ARREST [None]
  - PUPIL FIXED [None]
  - INTENTIONAL DRUG MISUSE [None]
  - RESPIRATORY ARREST [None]
